FAERS Safety Report 7403782-X (Version None)
Quarter: 2011Q2

REPORT INFORMATION
  Report Type: 
  Country: None (occurrence: None)
  Receive Date: 20110408
  Receipt Date: 20110329
  Transmission Date: 20111010
  Serious: Yes (Hospitalization)
  Sender: FDA-Public Use
  Company Number: US-ABBOTT-09P-163-0614798-00

PATIENT
  Sex: Female
  Weight: 49 kg

DRUGS (16)
  1. ZYRTEC [Concomitant]
     Indication: HYPERSENSITIVITY
  2. BALSALAZIDE DISODIUM [Concomitant]
     Indication: COLITIS
     Dates: end: 20090918
  3. LEXAPRO [Concomitant]
     Indication: AGGRESSION
     Dates: start: 20091101, end: 20091201
  4. HUMIRA [Suspect]
     Route: 058
     Dates: start: 20100104, end: 20100118
  5. HYDROXYZINE [Concomitant]
     Indication: PRODUCT USED FOR UNKNOWN INDICATION
  6. METOPROLOL [Concomitant]
     Indication: HYPERTENSION
  7. CLONAZEPAM [Concomitant]
     Indication: RESTLESS LEGS SYNDROME
  8. LEXAPRO [Concomitant]
     Indication: DEPRESSION
  9. HUMIRA [Suspect]
     Indication: CROHN'S DISEASE
     Route: 058
     Dates: start: 20091104, end: 20091211
  10. ASPIRIN [Concomitant]
     Indication: MYOCARDIAL INFARCTION
  11. LEXAPRO [Concomitant]
     Indication: PARANOIA
  12. ELMIRON [Concomitant]
     Indication: CYSTITIS INTERSTITIAL
  13. PROSED/DS [Concomitant]
     Indication: TUBULOINTERSTITIAL NEPHRITIS
  14. PREDNISONE [Concomitant]
     Indication: CROHN'S DISEASE
  15. LOMOTIL [Concomitant]
     Indication: DIARRHOEA
     Dosage: 4 TABLETS
  16. NEXIUM [Concomitant]
     Indication: DYSPEPSIA

REACTIONS (4)
  - CONFUSIONAL STATE [None]
  - GAIT DISTURBANCE [None]
  - ASTHENIA [None]
  - MEMORY IMPAIRMENT [None]
